FAERS Safety Report 7412990-3 (Version None)
Quarter: 2011Q2

REPORT INFORMATION
  Report Type: 
  Country: None (occurrence: None)
  Receive Date: 20110413
  Receipt Date: 20110408
  Transmission Date: 20111010
  Serious: Yes (Other)
  Sender: FDA-Public Use
  Company Number: GB-MERCK-1104GBR00040

PATIENT
  Age: 78 Year
  Sex: Female
  Weight: 56 kg

DRUGS (7)
  1. FOSAMAX [Suspect]
     Route: 048
     Dates: start: 20110330
  2. ALBUTEROL [Concomitant]
     Route: 065
     Dates: start: 20110207
  3. LEVOTHYROXINE SODIUM [Concomitant]
     Route: 065
     Dates: start: 20101214
  4. ALENDRONATE SODIUM [Concomitant]
     Route: 048
     Dates: start: 20110111
  5. FLUTICASONE PROPIONATE AND SALMETEROL XINAFOATE [Concomitant]
     Route: 065
     Dates: start: 20110207
  6. TRAMADOL HYDROCHLORIDE [Concomitant]
     Route: 048
  7. TIOTROPIUM BROMIDE [Concomitant]
     Route: 065
     Dates: start: 20101214

REACTIONS (1)
  - HICCUPS [None]
